FAERS Safety Report 9732857 (Version 1)
Quarter: 2013Q4

REPORT INFORMATION
  Report Type: Spontaneous
  Country: US (occurrence: US)
  Receive Date: 20131204
  Receipt Date: 20131204
  Transmission Date: 20140711
  Serious: No
  Sender: FDA-Public Use
  Company Number: US-GILEAD-2009-0021460

PATIENT
  Sex: Female
  Weight: 81.65 kg

DRUGS (13)
  1. LETAIRIS [Suspect]
     Indication: PULMONARY ARTERIAL HYPERTENSION
     Route: 048
     Dates: start: 20090225
  2. DIGOXIN [Concomitant]
  3. COUMADIN [Concomitant]
  4. CARDIZEM CD [Concomitant]
  5. MONOPRIL [Concomitant]
  6. LASIX [Concomitant]
  7. FLOLAN [Concomitant]
  8. REVATIO [Concomitant]
  9. AMBIEN [Concomitant]
  10. MICRO-K [Concomitant]
  11. NEURONTIN [Concomitant]
  12. VICODIN [Concomitant]
  13. ELAVIL [Concomitant]

REACTIONS (1)
  - Rash [Unknown]
